FAERS Safety Report 11010365 (Version 1)
Quarter: 2015Q2

REPORT INFORMATION
  Report Type: Spontaneous
  Country: US (occurrence: US)
  Receive Date: 20150410
  Receipt Date: 20150410
  Transmission Date: 20150821
  Serious: Yes (Death, Hospitalization, Other)
  Sender: FDA-Public Use
  Company Number: US-ASTRAZENECA-2014SE00661

PATIENT
  Age: 829 Month
  Sex: Male

DRUGS (48)
  1. VICTOZA [Suspect]
     Active Substance: LIRAGLUTIDE
     Dosage: 18 MG/3 ML
     Route: 065
     Dates: start: 20100424
  2. HYDROMORPHONE [Concomitant]
     Active Substance: HYDROMORPHONE
     Route: 048
     Dates: start: 20060529
  3. GLYBURIDE-METFORMIN [Concomitant]
     Dosage: 5/500
     Dates: start: 20060629
  4. ROBINUL [Concomitant]
     Active Substance: GLYCOPYRROLATE
     Dosage: 0.2 MG/ML EVERY 4 HOURS
     Route: 058
     Dates: start: 20130326
  5. PACLITAXEL. [Concomitant]
     Active Substance: PACLITAXEL
     Dates: start: 20130125
  6. FOLIC ACID. [Concomitant]
     Active Substance: FOLIC ACID
     Route: 048
     Dates: start: 20111116
  7. ZOCOR [Concomitant]
     Active Substance: SIMVASTATIN
     Route: 048
     Dates: start: 20121202
  8. JANUVIA [Suspect]
     Active Substance: SITAGLIPTIN PHOSPHATE
     Route: 048
     Dates: start: 20070519
  9. LEVAQUIN [Concomitant]
     Active Substance: LEVOFLOXACIN
     Route: 048
     Dates: start: 20050429
  10. MECLIZINE [Concomitant]
     Active Substance: MECLIZINE\MECLIZINE HYDROCHLORIDE
     Route: 048
     Dates: start: 20060905
  11. HYDROXYCHLOROQUINE [Concomitant]
     Active Substance: HYDROXYCHLOROQUINE
     Route: 048
     Dates: start: 20120521
  12. TRAMADOL HCL [Concomitant]
     Active Substance: TRAMADOL HYDROCHLORIDE
     Route: 048
     Dates: start: 20121217
  13. ZENPEP [Concomitant]
     Active Substance: PANCRELIPASE\PANCRELIPASE AMYLASE\PANCRELIPASE LIPASE\PANCRELIPASE PROTEASE
     Dosage: 20,000 UNITS
     Route: 048
     Dates: start: 20121217
  14. MORPHINE SULFATE. [Concomitant]
     Active Substance: MORPHINE SULFATE
     Dosage: 10 MG/ML HOURLY AS NEEDED.
     Route: 058
     Dates: start: 20130326
  15. PEPCID [Concomitant]
     Active Substance: FAMOTIDINE
     Route: 042
     Dates: start: 20121202
  16. LOPRESSOR [Concomitant]
     Active Substance: METOPROLOL TARTRATE
     Route: 042
     Dates: start: 20121202
  17. BYETTA [Suspect]
     Active Substance: EXENATIDE
     Route: 065
     Dates: start: 2008, end: 2010
  18. BYETTA [Suspect]
     Active Substance: EXENATIDE
     Dosage: 10 MCG/0.04 ML
     Route: 065
     Dates: start: 20080803
  19. JANUVIA [Suspect]
     Active Substance: SITAGLIPTIN PHOSPHATE
     Route: 048
     Dates: start: 20080919
  20. VICTOZA [Suspect]
     Active Substance: LIRAGLUTIDE
     Route: 065
     Dates: start: 2010, end: 201212
  21. PROMETHAZINE [Concomitant]
     Active Substance: PROMETHAZINE\PROMETHAZINE HYDROCHLORIDE
     Route: 048
     Dates: start: 20060529
  22. CIPROFLOXACIN HCL [Concomitant]
     Active Substance: CIPROFLOXACIN HYDROCHLORIDE
     Route: 048
     Dates: start: 20051215
  23. TEQUIN [Concomitant]
     Active Substance: GATIFLOXACIN
     Route: 048
     Dates: start: 20040710
  24. GEMZAR [Concomitant]
     Active Substance: GEMCITABINE HYDROCHLORIDE
     Dates: start: 20130125
  25. HUMALOG [Concomitant]
     Active Substance: INSULIN LISPRO
     Dosage: 1-5 UNITS
     Route: 058
     Dates: start: 20121202
  26. BYETTA [Suspect]
     Active Substance: EXENATIDE
     Route: 065
     Dates: start: 20070103
  27. JANUVIA [Suspect]
     Active Substance: SITAGLIPTIN PHOSPHATE
     Route: 065
     Dates: start: 2007, end: 2008
  28. METHOTREXATE [Concomitant]
     Active Substance: METHOTREXATE
     Route: 048
     Dates: start: 20090923
  29. ACTOPLUS MET [Concomitant]
     Active Substance: METFORMIN HYDROCHLORIDE\PIOGLITAZONE HYDROCHLORIDE
     Dosage: 15 MG-850 MG
     Route: 048
     Dates: start: 20100424
  30. TAMSULOSIN HCL [Concomitant]
     Active Substance: TAMSULOSIN
     Route: 048
     Dates: start: 20100424
  31. ATORVASTATIN [Concomitant]
     Active Substance: ATORVASTATIN
     Route: 048
     Dates: start: 20120111
  32. HALDOL [Concomitant]
     Active Substance: HALOPERIDOL
     Dosage: 5 MG/ML EVERY 6 HOURS
     Route: 042
     Dates: start: 20130327
  33. OXYCODONE HCL [Concomitant]
     Active Substance: OXYCODONE HYDROCHLORIDE
     Route: 048
     Dates: start: 20130107
  34. SYNTHROID [Concomitant]
     Active Substance: LEVOTHYROXINE SODIUM
     Indication: HYPOTHYROIDISM
     Route: 048
     Dates: start: 20061030
  35. LISINOPRIL. [Concomitant]
     Active Substance: LISINOPRIL
     Indication: HYPERTENSION
     Route: 048
     Dates: start: 20070922
  36. MULTIHANCE [Concomitant]
     Active Substance: GADOBENATE DIMEGLUMINE
     Route: 042
     Dates: start: 20121202
  37. METHOTREXATE [Concomitant]
     Active Substance: METHOTREXATE
     Dosage: 2.5 MG TAKE 5 TABLETS BY MOUTH ONCE EACH WEEK.
     Route: 048
     Dates: start: 20120925
  38. METOCLOPRAMIDE. [Concomitant]
     Active Substance: METOCLOPRAMIDE
     Route: 048
     Dates: start: 20130107
  39. WARFARIN SODIUM. [Concomitant]
     Active Substance: WARFARIN SODIUM
     Route: 048
     Dates: start: 20060705
  40. ZOFRAN [Concomitant]
     Active Substance: ONDANSETRON HYDROCHLORIDE
     Route: 048
     Dates: start: 20060905
  41. XARELTO [Concomitant]
     Active Substance: RIVAROXABAN
     Route: 048
     Dates: start: 20130217
  42. AVANDAMET [Concomitant]
     Active Substance: METFORMIN HYDROCHLORIDE\ROSIGLITAZONE MALEATE
     Indication: DIABETES MELLITUS
     Route: 048
     Dates: start: 20060531
  43. TRIAMTERENE AND HYDROCHLOROTHIAZIDE [Concomitant]
     Active Substance: HYDROCHLOROTHIAZIDE\TRIAMTERENE
     Dosage: 37.5/25
     Dates: start: 20070322
  44. PROTONIX [Concomitant]
     Active Substance: PANTOPRAZOLE SODIUM
     Route: 048
     Dates: start: 20070401
  45. TRIAZOLAM. [Concomitant]
     Active Substance: TRIAZOLAM
     Route: 048
     Dates: start: 20111213
  46. BACLOFEN. [Concomitant]
     Active Substance: BACLOFEN
     Route: 048
     Dates: start: 20130317
  47. LORAZEPAM. [Concomitant]
     Active Substance: LORAZEPAM
     Dosage: 2 MG/ML EVERY 4 HOURS
     Route: 042
     Dates: start: 20130326
  48. LEVITRA [Concomitant]
     Active Substance: VARDENAFIL HYDROCHLORIDE TRIHYDRATE
     Dosage: 20MG.TAKE ONE(1) 1ABLET 30?60 MLNUTES BETORE SEXUALLNTERCOURSE AS NEEDED.
     Route: 048
     Dates: start: 20130326

REACTIONS (4)
  - Jaundice cholestatic [Unknown]
  - Metastases to liver [Unknown]
  - Ascites [Unknown]
  - Pancreatic carcinoma metastatic [Fatal]

NARRATIVE: CASE EVENT DATE: 201212
